FAERS Safety Report 21282711 (Version 2)
Quarter: 2022Q3

REPORT INFORMATION
  Report Type: Report from Study
  Country: US (occurrence: US)
  Receive Date: 20220901
  Receipt Date: 20220915
  Transmission Date: 20221027
  Serious: Yes (Other)
  Sender: FDA-Public Use
  Company Number: US-OTSUKA-2022_042875

PATIENT
  Sex: Female

DRUGS (1)
  1. CEDAZURIDINE\DECITABINE [Suspect]
     Active Substance: CEDAZURIDINE\DECITABINE
     Indication: Myelodysplastic syndrome
     Dosage: 1 DF, QD (ON DAYS 1 TO 5 OF A 28-DAY CYCLE)
     Route: 048
     Dates: start: 20220216

REACTIONS (2)
  - Syncope [Unknown]
  - Dizziness [Unknown]
